FAERS Safety Report 11108783 (Version 4)
Quarter: 2015Q3

REPORT INFORMATION
  Report Type: Spontaneous
  Country: GB (occurrence: None)
  Receive Date: 20150511
  Receipt Date: 20150820
  Transmission Date: 20151125
  Serious: Yes (Other)
  Sender: FDA-Public Use
  Company Number: ADR-2015-00922

PATIENT
  Sex: Female

DRUGS (1)
  1. BACLOFEN INTRATHECAL 3000 MCG/ML [Suspect]
     Active Substance: BACLOFEN
     Dosage: SEE B5

REACTIONS (7)
  - Implant site reaction [None]
  - Muscle spasms [None]
  - Implant site fibrosis [None]
  - Medical device complication [None]
  - Device connection issue [None]
  - Implant site extravasation [None]
  - Medical device site fibrosis [None]

NARRATIVE: CASE EVENT DATE: 20150415
